FAERS Safety Report 25862961 (Version 1)
Quarter: 2025Q3

REPORT INFORMATION
  Report Type: Spontaneous
  Country: US (occurrence: US)
  Receive Date: 20250930
  Receipt Date: 20250930
  Transmission Date: 20251021
  Serious: No
  Sender: Haleon PLC
  Company Number: US-HALEON-2264203

PATIENT

DRUGS (3)
  1. GAS-X ULTIMATE STRENGTH SOFTGELS [Suspect]
     Active Substance: DIMETHICONE
     Indication: Irritable bowel syndrome
  2. GAS-X ULTIMATE STRENGTH SOFTGELS [Suspect]
     Active Substance: DIMETHICONE
     Indication: Gastritis
  3. GAS-X ULTIMATE STRENGTH SOFTGELS [Suspect]
     Active Substance: DIMETHICONE
     Indication: Gastrooesophageal reflux disease

REACTIONS (2)
  - Drug effective for unapproved indication [Unknown]
  - Product use in unapproved indication [Unknown]
